FAERS Safety Report 23964220 (Version 1)
Quarter: 2024Q2

REPORT INFORMATION
  Report Type: Spontaneous
  Country: US (occurrence: US)
  Receive Date: 20240612
  Receipt Date: 20240612
  Transmission Date: 20240716
  Serious: No
  Sender: FDA-Public Use
  Company Number: US--RIGEL PHARMACEUTICALS, INC.-2023FOS001331

PATIENT
  Sex: Female

DRUGS (1)
  1. TAVALISSE [Suspect]
     Active Substance: FOSTAMATINIB
     Indication: Neutropenia
     Dosage: 150 MG, BID
     Route: 048

REACTIONS (4)
  - Vomiting [Unknown]
  - Flatulence [Unknown]
  - Off label use [Unknown]
  - Nausea [Unknown]
